FAERS Safety Report 19653855 (Version 1)
Quarter: 2021Q3

REPORT INFORMATION
  Report Type: Report from Study
  Country: JP (occurrence: JP)
  Receive Date: 20210804
  Receipt Date: 20210804
  Transmission Date: 20211014
  Serious: Yes (Hospitalization)
  Sender: FDA-Public Use
  Company Number: JP-JNJFOC-20210802973

PATIENT
  Age: 69 Year
  Sex: Female
  Weight: 43.5 kg

DRUGS (3)
  1. VOTRIENT [Suspect]
     Active Substance: PAZOPANIB HYDROCHLORIDE
     Indication: PRODUCT USED FOR UNKNOWN INDICATION
     Dosage: DAILY DOSE 800 MG
     Route: 065
     Dates: start: 20200910, end: 20201015
  2. XARELTO [Suspect]
     Active Substance: RIVAROXABAN
     Indication: EMBOLISM VENOUS
     Dosage: DAILY DOSE 30 MG
     Route: 048
     Dates: start: 20200817, end: 20200909
  3. XARELTO [Suspect]
     Active Substance: RIVAROXABAN
     Indication: EMBOLISM VENOUS
     Dosage: DAILY DOSE 15 MG
     Route: 048
     Dates: start: 20200910, end: 20201015

REACTIONS (2)
  - Anaemia [Recovering/Resolving]
  - Inappropriate schedule of product administration [Unknown]

NARRATIVE: CASE EVENT DATE: 20201015
